FAERS Safety Report 6261291-8 (Version None)
Quarter: 2009Q3

REPORT INFORMATION
  Report Type: 
  Country: None (occurrence: None)
  Receive Date: 20090709
  Receipt Date: 20090411
  Transmission Date: 20100115
  Serious: No
  Sender: FDA-Public Use
  Company Number: US-KINGPHARMUSA00001-K200900429

PATIENT
  Sex: Female
  Weight: 56.236 kg

DRUGS (5)
  1. LEVOXYL [Suspect]
     Indication: THYROID DISORDER
     Dosage: 25 MCG, 4 DAYS PER WEEK
     Route: 048
     Dates: start: 20080101
  2. LEVOXYL [Suspect]
     Dosage: 50 MCG, TIW
     Route: 048
     Dates: start: 20080101
  3. VITAMIN E                          /00110501/ [Concomitant]
     Indication: SUPPLEMENTATION THERAPY
     Dosage: UNK
     Route: 048
  4. B-COMPLEX                          /00302401/ [Concomitant]
     Indication: SUPPLEMENTATION THERAPY
     Dosage: UNK
     Route: 048
  5. VITAMIN C                          /00008001/ [Concomitant]
     Indication: SUPPLEMENTATION THERAPY
     Dosage: UNK
     Route: 048

REACTIONS (7)
  - ALOPECIA [None]
  - ARTHRALGIA [None]
  - BLOOD THYROID STIMULATING HORMONE DECREASED [None]
  - FATIGUE [None]
  - INSOMNIA [None]
  - PAIN IN EXTREMITY [None]
  - SKIN EXFOLIATION [None]
